FAERS Safety Report 14830041 (Version 2)
Quarter: 2018Q2

REPORT INFORMATION
  Report Type: Report from Study
  Country: CN (occurrence: CN)
  Receive Date: 20180430
  Receipt Date: 20180626
  Transmission Date: 20180711
  Serious: Yes (Death)
  Sender: FDA-Public Use
  Company Number: CN-PFIZER INC-2018174506

PATIENT

DRUGS (1)
  1. VORICONAZOLE. [Suspect]
     Active Substance: VORICONAZOLE
     Indication: ANTIFUNGAL PROPHYLAXIS
     Dosage: 200 MG, 2X/DAY

REACTIONS (1)
  - Drug ineffective [Fatal]
